FAERS Safety Report 24747716 (Version 1)
Quarter: 2024Q4

REPORT INFORMATION
  Report Type: Spontaneous
  Country: US (occurrence: None)
  Receive Date: 20241217
  Receipt Date: 20241217
  Transmission Date: 20250115
  Serious: No
  Sender: Public
  Company Number: None

PATIENT
  Sex: Female

DRUGS (2)
  1. OTEZLA [Suspect]
     Active Substance: APREMILAST
     Indication: Psoriasis
     Dosage: FREQUENCY : TWICE A DAY;?
     Route: 048
     Dates: start: 202408
  2. FASENRA [Concomitant]
     Active Substance: BENRALIZUMAB

REACTIONS (7)
  - Drug ineffective [None]
  - Peripheral swelling [None]
  - Skin fissures [None]
  - Illness [None]
  - Intentional dose omission [None]
  - Product dose omission in error [None]
  - Memory impairment [None]
